FAERS Safety Report 11265293 (Version 1)
Quarter: 2015Q3

REPORT INFORMATION
  Report Type: Report from Study
  Country: US (occurrence: US)
  Receive Date: 20150713
  Receipt Date: 20150713
  Transmission Date: 20151125
  Serious: Yes (Hospitalization)
  Sender: FDA-Public Use
  Company Number: US-BIOGENIDEC-2015BI093560

PATIENT
  Age: 65 Year
  Sex: Female

DRUGS (2)
  1. GABAPENTIN. [Concomitant]
     Active Substance: GABAPENTIN
     Route: 048
  2. TYSABRI [Suspect]
     Active Substance: NATALIZUMAB
     Indication: MULTIPLE SCLEROSIS
     Route: 042
     Dates: start: 20081114

REACTIONS (5)
  - Cholecystitis infective [Recovered/Resolved]
  - Overdose [Recovered/Resolved]
  - Adverse drug reaction [Recovered/Resolved]
  - Urinary tract infection [Recovered/Resolved]
  - Ammonia increased [Recovered/Resolved]

NARRATIVE: CASE EVENT DATE: 201506
